FAERS Safety Report 6013021-2 (Version None)
Quarter: 2008Q4

REPORT INFORMATION
  Report Type: 
  Country: None (occurrence: None)
  Receive Date: 20081219
  Receipt Date: 20081209
  Transmission Date: 20090506
  Serious: Yes (Hospitalization)
  Sender: FDA-Public Use
  Company Number: IT-PFIZER INC-2008085682

PATIENT

DRUGS (6)
  1. SUNITINIB MALATE [Suspect]
     Indication: BREAST CANCER
     Dosage: 37.5 MG, 1X/DAY
     Route: 048
     Dates: start: 20080905, end: 20080930
  2. *CAPECITABINE [Suspect]
     Indication: BREAST CANCER
     Dosage: 1575 MG, 2X/DAY
     Route: 048
     Dates: start: 20080905, end: 20081008
  3. SOLDESAM [Concomitant]
     Indication: PROPHYLAXIS
     Dosage: DAILY
     Dates: start: 20080806
  4. TORADOL [Concomitant]
     Indication: PAIN
     Dosage: DAILY
     Dates: start: 20080806
  5. CONCOR [Concomitant]
     Indication: HYPERTENSION
     Dosage: DAILY
     Dates: start: 20080821
  6. MEPRAL [Concomitant]
     Indication: GASTRIC DISORDER
     Dosage: DAILY
     Dates: start: 20080821

REACTIONS (4)
  - ABDOMINAL PAIN UPPER [None]
  - DIARRHOEA [None]
  - ELECTROCARDIOGRAM ST-T SEGMENT DEPRESSION [None]
  - HYPERTENSION [None]
